FAERS Safety Report 20954391 (Version 2)
Quarter: 2022Q2

REPORT INFORMATION
  Report Type: Spontaneous
  Country: US (occurrence: None)
  Receive Date: 20220614
  Receipt Date: 20220615
  Transmission Date: 20220721
  Serious: No
  Sender: FDA-Public Use
  Company Number: US-MDD US Operations-MDD202107-001535

PATIENT
  Sex: Female

DRUGS (1)
  1. APOKYN [Suspect]
     Active Substance: APOMORPHINE HYDROCHLORIDE
     Indication: Parkinson^s disease
     Dosage: 0.1 ML AS STARTER DOSE AND  AND TITRATE BY 0.1 ML EVERY FEW DAYS UP TO 0.6 ML
     Route: 058

REACTIONS (2)
  - Hypersensitivity [Unknown]
  - Blood pressure decreased [Unknown]
